FAERS Safety Report 6270651-0 (Version None)
Quarter: 2009Q3

REPORT INFORMATION
  Report Type: 
  Country: None (occurrence: None)
  Receive Date: 20090716
  Receipt Date: 20090709
  Transmission Date: 20100115
  Serious: Yes (Hospitalization)
  Sender: FDA-Public Use
  Company Number: JP-ASTRAZENECA-2009AP03165

PATIENT
  Age: 70 Year
  Sex: Female
  Weight: 63 kg

DRUGS (9)
  1. IRESSA [Suspect]
     Indication: LUNG NEOPLASM MALIGNANT
     Route: 048
     Dates: start: 20090302, end: 20090420
  2. MUCOSOLVAN [Concomitant]
     Indication: LUNG NEOPLASM MALIGNANT
     Route: 048
     Dates: start: 20090206
  3. ALLEGRA [Concomitant]
     Indication: RASH
     Route: 048
     Dates: start: 20090302, end: 20090307
  4. MAGMITT [Concomitant]
     Indication: CONSTIPATION
     Route: 048
     Dates: start: 20090311
  5. MUCODYNE [Concomitant]
     Indication: LUNG NEOPLASM MALIGNANT
     Route: 048
     Dates: start: 20090311
  6. CRAVIT [Concomitant]
     Indication: CYSTITIS
     Route: 048
     Dates: start: 20090311, end: 20090313
  7. CRAVIT [Concomitant]
     Route: 048
     Dates: start: 20090402, end: 20090404
  8. CRAVIT [Concomitant]
     Route: 048
     Dates: start: 20090425, end: 20090428
  9. VITAMEDIN [Concomitant]
     Indication: STOMATITIS
     Route: 048
     Dates: start: 20090407, end: 20090625

REACTIONS (5)
  - CYSTITIS [None]
  - LIVER DISORDER [None]
  - PRURITUS [None]
  - RASH [None]
  - STOMATITIS [None]
